FAERS Safety Report 4993876-0 (Version None)
Quarter: 2006Q2

REPORT INFORMATION
  Report Type: 
  Country: None (occurrence: None)
  Receive Date: 20060505
  Receipt Date: 20050907
  Transmission Date: 20061013
  Serious: Yes (Hospitalization, Other)
  Sender: FDA-Public Use
  Company Number: US-MERCK-0509USA00812

PATIENT
  Age: 82 Year
  Sex: Male
  Weight: 82 kg

DRUGS (2)
  1. VIOXX [Suspect]
     Indication: PAIN
     Route: 048
     Dates: start: 20030325, end: 20030507
  2. VIOXX [Suspect]
     Indication: ARTHRITIS
     Route: 048
     Dates: start: 20030325, end: 20030507

REACTIONS (5)
  - APHASIA [None]
  - BLINDNESS [None]
  - CEREBROVASCULAR ACCIDENT [None]
  - DYSPHAGIA [None]
  - HEMIPLEGIA [None]
